FAERS Safety Report 9492824 (Version 1)
Quarter: 2013Q3

REPORT INFORMATION
  Report Type: Spontaneous
  Country: US (occurrence: US)
  Receive Date: 20130830
  Receipt Date: 20130830
  Transmission Date: 20140515
  Serious: No
  Sender: FDA-Public Use
  Company Number: US-US-EMD SERONO, INC.-7233502

PATIENT
  Age: 20 Year
  Sex: Female

DRUGS (2)
  1. REBIF [Suspect]
     Indication: MULTIPLE SCLEROSIS
     Route: 058
     Dates: start: 20130706
  2. REBIF [Suspect]
     Route: 058
     Dates: start: 20130720

REACTIONS (2)
  - Tremor [Unknown]
  - Influenza like illness [Unknown]
